FAERS Safety Report 4594575-X (Version None)
Quarter: 2005Q1

REPORT INFORMATION
  Report Type: 
  Country: None (occurrence: None)
  Receive Date: 20050301
  Receipt Date: 20040602
  Transmission Date: 20050727
  Serious: No
  Sender: FDA-Public Use
  Company Number: US-GLAXOSMITHKLINE-A0513040A

PATIENT
  Sex: Female

DRUGS (5)
  1. VALTREX [Suspect]
     Dosage: 2000MG PER DAY
     Route: 048
     Dates: start: 20000101
  2. TOPICAL CREAM [Concomitant]
  3. CLIMARA [Concomitant]
  4. ZYRTEC [Concomitant]
  5. Z-PACK [Concomitant]

REACTIONS (1)
  - RASH [None]
